FAERS Safety Report 6390921-5 (Version None)
Quarter: 2009Q4

REPORT INFORMATION
  Report Type: 
  Country: None (occurrence: None)
  Receive Date: 20091003
  Receipt Date: 20090922
  Transmission Date: 20100525
  Serious: Yes (Other)
  Sender: FDA-Public Use
  Company Number: 2009AL006174

PATIENT
  Age: 16 Year
  Sex: Female

DRUGS (1)
  1. LOVASTATIN [Suspect]
     Indication: HYPERCHOLESTEROLAEMIA
     Dosage: 20 MG;QD

REACTIONS (9)
  - DEAFNESS NEUROSENSORY [None]
  - GLOMERULOSCLEROSIS [None]
  - HYPERCHOLESTEROLAEMIA [None]
  - MELAS SYNDROME [None]
  - MYALGIA [None]
  - MYOPATHY [None]
  - OEDEMA PERIPHERAL [None]
  - PROTEINURIA [None]
  - RENAL FAILURE CHRONIC [None]
